FAERS Safety Report 8197428-3 (Version None)
Quarter: 2012Q1

REPORT INFORMATION
  Report Type: 
  Country: None (occurrence: None)
  Receive Date: 20120309
  Receipt Date: 20120306
  Transmission Date: 20120608
  Serious: Yes (Hospitalization, Other)
  Sender: FDA-Public Use
  Company Number: ES-B.I. PHARMACEUTICALS,INC./RIDGEFIELD-2012-EU-00843GD

PATIENT
  Age: 61 Year
  Sex: Male

DRUGS (3)
  1. CARBIDOPA + LEVODOPA [Suspect]
     Indication: PARKINSON'S DISEASE
     Dosage: LEVODOPA/CARBIDOPA 300/150 MG/DAY
  2. GABAPENTIN [Concomitant]
     Dosage: 900 MG
  3. PRAMIPEXOLE DIHYDROCHLORIDE [Suspect]
     Indication: PARKINSON'S DISEASE
     Dosage: 25 MG

REACTIONS (7)
  - JEALOUS DELUSION [None]
  - DELUSION [None]
  - EMOTIONAL DISORDER [None]
  - HYPERSEXUALITY [None]
  - SUICIDE ATTEMPT [None]
  - OVERDOSE [None]
  - IMPULSE-CONTROL DISORDER [None]
